FAERS Safety Report 10656988 (Version 2)
Quarter: 2015Q1

REPORT INFORMATION
  Report Type: Spontaneous
  Country: US (occurrence: None)
  Receive Date: 20141215
  Receipt Date: 20150202
  Transmission Date: 20150720
  Serious: Yes (Other)
  Sender: FDA-Public Use
  Company Number: 2014-US-016158

PATIENT
  Age: 59 Year
  Sex: Female
  Weight: 43.5 kg

DRUGS (1)
  1. XYREM [Suspect]
     Active Substance: SODIUM OXYBATE
     Indication: HYPERSOMNIA
     Route: 048
     Dates: start: 201407, end: 2014

REACTIONS (9)
  - Off label use [None]
  - Crying [None]
  - Arthritis [None]
  - Depression [None]
  - Somnolence [None]
  - Diarrhoea [None]
  - Head injury [None]
  - Weight decreased [None]
  - Fall [None]

NARRATIVE: CASE EVENT DATE: 2014
